FAERS Safety Report 16921548 (Version 1)
Quarter: 2019Q4

REPORT INFORMATION
  Report Type: Spontaneous
  Country: FR (occurrence: FR)
  Receive Date: 20191015
  Receipt Date: 20191015
  Transmission Date: 20200122
  Serious: Yes (Death, Other)
  Sender: FDA-Public Use
  Company Number: PHHY2019FR227660

PATIENT
  Age: 67 Year
  Sex: Female

DRUGS (2)
  1. RITUXIMAB. [Suspect]
     Active Substance: RITUXIMAB
     Indication: GRANULOMATOSIS WITH POLYANGIITIS
     Route: 065
  2. PREDNISOLONE. [Suspect]
     Active Substance: PREDNISOLONE
     Indication: GRANULOMATOSIS WITH POLYANGIITIS
     Route: 065

REACTIONS (13)
  - Gastrointestinal necrosis [Unknown]
  - Abdominal pain [Unknown]
  - Septic shock [Fatal]
  - Polyneuropathy [Unknown]
  - Peritonitis [Unknown]
  - Haematuria [Unknown]
  - Anaemia [Unknown]
  - Aortic aneurysm [Unknown]
  - Peritoneal haemorrhage [Unknown]
  - Shock haemorrhagic [Unknown]
  - Glomerulonephritis rapidly progressive [Unknown]
  - Proteinuria [Unknown]
  - Renal impairment [Unknown]
